FAERS Safety Report 8823427 (Version 1)
Quarter: 2012Q4

REPORT INFORMATION
  Report Type: 
  Country: IT (occurrence: IT)
  Receive Date: 20121003
  Receipt Date: 20121003
  Transmission Date: 20130627
  Serious: Yes (Death, Hospitalization, Other)
  Sender: FDA-Public Use
  Company Number: IT-ROXANE LABORATORIES, INC.-2012-RO-01930RO

PATIENT
  Age: 79 Year
  Sex: Female

DRUGS (7)
  1. FUROSEMIDE [Suspect]
  2. RAMIPRIL [Suspect]
  3. OMEPRAZOLE [Suspect]
  4. KETOPROFEN [Suspect]
     Dosage: 50 mg
     Route: 048
  5. CIPROFLOXACIN [Suspect]
  6. ASPIRIN [Suspect]
  7. CARVEDILOL [Suspect]

REACTIONS (5)
  - Death [Fatal]
  - Renal failure acute [Unknown]
  - Cardiac failure [Unknown]
  - Pleural effusion [Unknown]
  - Metabolic acidosis [Unknown]
